FAERS Safety Report 7445073-7 (Version None)
Quarter: 2011Q2

REPORT INFORMATION
  Report Type: 
  Country: None (occurrence: None)
  Receive Date: 20110429
  Receipt Date: 20110422
  Transmission Date: 20111010
  Serious: Yes (Other)
  Sender: FDA-Public Use
  Company Number: TR-ROXANE LABORATORIES, INC.-2011-RO-00559RO

PATIENT
  Age: 43 Year
  Sex: Female

DRUGS (5)
  1. CYCLOPHOSPHAMIDE [Suspect]
     Indication: BREAST CANCER
  2. TAMOXIFEN CITRATE [Suspect]
     Indication: BREAST CANCER
  3. FLUOROURACIL [Suspect]
     Indication: BREAST CANCER
  4. EPIRUBICIN [Suspect]
     Indication: BREAST CANCER
  5. PACLITAXEL [Suspect]
     Indication: BREAST CANCER

REACTIONS (1)
  - ACUTE PROMYELOCYTIC LEUKAEMIA [None]
